FAERS Safety Report 23729452 (Version 1)
Quarter: 2024Q2

REPORT INFORMATION
  Report Type: Spontaneous
  Country: US (occurrence: US)
  Receive Date: 20240410
  Receipt Date: 20240410
  Transmission Date: 20240715
  Serious: No
  Sender: FDA-Public Use
  Company Number: US-BRISTOL-MYERS SQUIBB COMPANY-2024-056865

PATIENT
  Age: 78 Year
  Sex: Female

DRUGS (1)
  1. REVLIMID [Suspect]
     Active Substance: LENALIDOMIDE
     Indication: Follicular lymphoma
     Route: 048
     Dates: start: 202302

REACTIONS (6)
  - Peripheral swelling [Unknown]
  - Pruritus [Recovered/Resolved]
  - Rash [Recovered/Resolved]
  - Muscle spasms [Unknown]
  - Alopecia [Unknown]
  - Epistaxis [Unknown]

NARRATIVE: CASE EVENT DATE: 20230201
